FAERS Safety Report 8979778 (Version 2)
Quarter: 2013Q1

REPORT INFORMATION
  Report Type: Spontaneous
  Country: JP (occurrence: JP)
  Receive Date: 20121221
  Receipt Date: 20130220
  Transmission Date: 20140127
  Serious: Yes (Other)
  Sender: FDA-Public Use
  Company Number: JP-PFIZER INC-2012323095

PATIENT
  Age: 44 Year
  Sex: Female

DRUGS (3)
  1. LIPITOR [Suspect]
     Dosage: 10 MG, 1X/DAY
     Route: 048
     Dates: start: 2004
  2. SENNOSIDES [Concomitant]
     Dosage: UNK
  3. MOHRUS [Concomitant]
     Dosage: UNK

REACTIONS (3)
  - Optic neuritis [Recovering/Resolving]
  - Visual field defect [Recovering/Resolving]
  - Papilloedema [Recovering/Resolving]
